FAERS Safety Report 9888725 (Version 1)
Quarter: 2014Q1

REPORT INFORMATION
  Report Type: Spontaneous
  Country: US (occurrence: None)
  Receive Date: 20140210
  Receipt Date: 20140210
  Transmission Date: 20141002
  Serious: Yes (Life-Threatening, Disabling)
  Sender: FDA-Public Use
  Company Number: None

PATIENT
  Age: 72 Year
  Sex: Male
  Weight: 81.65 kg

DRUGS (1)
  1. JAKAFI [Suspect]
     Indication: POLYCYTHAEMIA VERA
     Dosage: TAKEN BY MOUTH
     Route: 048
     Dates: start: 20130301, end: 20130607

REACTIONS (13)
  - Somnolence [None]
  - Disturbance in attention [None]
  - Haemoglobin decreased [None]
  - Splenomegaly [None]
  - Pulmonary hypertension [None]
  - White blood cell count increased [None]
  - Weight decreased [None]
  - Diarrhoea [None]
  - Serum ferritin decreased [None]
  - Muscle atrophy [None]
  - Malabsorption [None]
  - Connective tissue disorder [None]
  - Condition aggravated [None]
